FAERS Safety Report 11963437 (Version 3)
Quarter: 2019Q1

REPORT INFORMATION
  Report Type: Report from Study
  Country: BR (occurrence: BR)
  Receive Date: 20160126
  Receipt Date: 20190129
  Transmission Date: 20190417
  Serious: Yes (Hospitalization, Other)
  Sender: FDA-Public Use
  Company Number: BR-ROCHE-1670227

PATIENT
  Sex: Female
  Weight: 17.6 kg

DRUGS (7)
  1. DOMPERIDONE [Concomitant]
     Active Substance: DOMPERIDONE
  2. PANCREATIN [Concomitant]
     Active Substance: PANCRELIPASE
     Indication: CYSTIC FIBROSIS
  3. ENZYMES [Concomitant]
  4. AVAMYS [Concomitant]
     Active Substance: FLUTICASONE FUROATE
     Indication: CYSTIC FIBROSIS
  5. MIDAZOLAM [Suspect]
     Active Substance: MIDAZOLAM HYDROCHLORIDE
     Indication: PRODUCT USED FOR UNKNOWN INDICATION
     Route: 065
  6. PULMOZYME [Suspect]
     Active Substance: DORNASE ALFA
     Indication: CYSTIC FIBROSIS
     Route: 065
     Dates: start: 201105
  7. ADEKS [Concomitant]
     Indication: CYSTIC FIBROSIS

REACTIONS (9)
  - Feeding disorder [Unknown]
  - Sputum retention [Unknown]
  - Lung disorder [Recovering/Resolving]
  - Weight gain poor [Unknown]
  - Gastrooesophageal reflux disease [Recovering/Resolving]
  - Asthenia [Unknown]
  - Malaise [Not Recovered/Not Resolved]
  - Drug hypersensitivity [Unknown]
  - Metabolic disorder [Recovering/Resolving]
